FAERS Safety Report 5148142-X (Version None)
Quarter: 2006Q4

REPORT INFORMATION
  Report Type: 
  Country: None (occurrence: None)
  Receive Date: 20061110
  Receipt Date: 20061030
  Transmission Date: 20070319
  Serious: Yes (Disabling)
  Sender: FDA-Public Use
  Company Number: GB-ROCHE-469734

PATIENT
  Age: 86 Year
  Sex: Female
  Weight: 65 kg

DRUGS (4)
  1. XELODA [Suspect]
     Indication: DRUG USE FOR UNKNOWN INDICATION
     Route: 048
     Dates: start: 20060412, end: 20060726
  2. BENDROFLUMETHIAZIDE [Concomitant]
     Route: 048
  3. LISINOPRIL [Concomitant]
     Route: 048
  4. OXYBUTYNIN [Concomitant]
     Route: 048

REACTIONS (1)
  - AMNESIA [None]
